FAERS Safety Report 23300818 (Version 1)
Quarter: 2023Q4

REPORT INFORMATION
  Report Type: Spontaneous
  Country: US (occurrence: None)
  Receive Date: 20231213
  Receipt Date: 20231213
  Transmission Date: 20240110
  Serious: Yes (Hospitalization)
  Sender: FDA-Public Use
  Company Number: None

PATIENT
  Age: 63 Year
  Sex: Female
  Weight: 69.3 kg

DRUGS (1)
  1. OXALIPLATIN [Suspect]
     Active Substance: OXALIPLATIN
     Dates: start: 20231127, end: 20231211

REACTIONS (5)
  - Throat tightness [None]
  - Dyspnoea [None]
  - Therapy interrupted [None]
  - Blood magnesium decreased [None]
  - Therapy cessation [None]

NARRATIVE: CASE EVENT DATE: 20231211
